FAERS Safety Report 6657429-0 (Version None)
Quarter: 2010Q1

REPORT INFORMATION
  Report Type: 
  Country: None (occurrence: None)
  Receive Date: 20100330
  Receipt Date: 20100317
  Transmission Date: 20100710
  Serious: Yes (Death, Other)
  Sender: FDA-Public Use
  Company Number: US-PFIZER INC-2010035385

PATIENT
  Sex: Female

DRUGS (1)
  1. CHANTIX [Suspect]
     Dosage: UNK
     Route: 048

REACTIONS (5)
  - DEATH [None]
  - DEMENTIA [None]
  - PARALYSIS [None]
  - STEVENS-JOHNSON SYNDROME [None]
  - SUICIDAL IDEATION [None]
